FAERS Safety Report 5305253-3 (Version None)
Quarter: 2007Q2

REPORT INFORMATION
  Report Type: 
  Country: None (occurrence: None)
  Receive Date: 20070424
  Receipt Date: 20070410
  Transmission Date: 20071010
  Serious: Yes (Other)
  Sender: FDA-Public Use
  Company Number: PHEH2007US05075

PATIENT
  Age: 67 Year
  Sex: Female

DRUGS (1)
  1. ZELNORM [Suspect]
     Indication: DIVERTICULITIS

REACTIONS (4)
  - COLONOSCOPY [None]
  - DIVERTICULITIS [None]
  - PANIC ATTACK [None]
  - SURGERY [None]
